FAERS Safety Report 7323024-3 (Version None)
Quarter: 2011Q1

REPORT INFORMATION
  Report Type: 
  Country: None (occurrence: None)
  Receive Date: 20110301
  Receipt Date: 20110224
  Transmission Date: 20110831
  Serious: Yes (Death, Life-Threatening, Hospitalization, Other)
  Sender: FDA-Public Use
  Company Number: PHHY2010NZ80001

PATIENT
  Sex: Male

DRUGS (5)
  1. HALOPERIDOL [Concomitant]
  2. CLOZARIL [Suspect]
     Indication: SCHIZOPHRENIA
     Dosage: UNK
     Dates: start: 20000510, end: 20100904
  3. DIGOXIN [Concomitant]
  4. HEPARIN [Concomitant]
  5. SIMVASTATIN [Concomitant]

REACTIONS (4)
  - CARDIAC FAILURE [None]
  - ATRIAL FIBRILLATION [None]
  - CONGESTIVE CARDIOMYOPATHY [None]
  - EJECTION FRACTION DECREASED [None]
